FAERS Safety Report 5132651-3 (Version None)
Quarter: 2006Q4

REPORT INFORMATION
  Report Type: 
  Country: None (occurrence: None)
  Receive Date: 20061023
  Receipt Date: 20061009
  Transmission Date: 20070319
  Serious: Yes (Hospitalization)
  Sender: FDA-Public Use
  Company Number: PHBS2006NL15670

PATIENT
  Age: 46 Year
  Sex: Female
  Weight: 60 kg

DRUGS (12)
  1. FAMVIR [Suspect]
     Indication: HERPES SIMPLEX
     Dosage: 500 MG, TID
     Route: 048
     Dates: start: 20060906, end: 20060914
  2. SOLU-MEDROL [Concomitant]
     Dosage: 40 MG, QD
     Dates: start: 20060817, end: 20060914
  3. MICROGYNON [Concomitant]
     Dosage: PER CYCLIAL
  4. NYSTATIN ^LABAZ^ [Concomitant]
     Dates: start: 20060912, end: 20060914
  5. TAVEGYL [Concomitant]
     Dosage: 1 MG, PRN
     Route: 048
  6. XYLOCAINE [Concomitant]
  7. OXAZEPAM [Concomitant]
     Dosage: 10 MG, PRN
     Route: 048
  8. DUSPATAL [Concomitant]
     Dosage: 200 MG, QD
     Route: 048
  9. PANTOZOL [Concomitant]
     Dosage: 40 MG, QD
     Route: 048
     Dates: start: 20060824, end: 20060914
  10. VESANOID [Concomitant]
     Dosage: 40 MG, BID
     Route: 048
     Dates: start: 20060817, end: 20060914
  11. DOMPERIDONE [Concomitant]
     Dosage: 10 MG, PRN
     Route: 048
  12. CHEMOTHERAPEUTICS,OTHER [Concomitant]
     Indication: ACUTE MONOCYTIC LEUKAEMIA

REACTIONS (3)
  - HAEMOGLOBIN DECREASED [None]
  - LEUKOPENIA [None]
  - PLATELET COUNT DECREASED [None]
